FAERS Safety Report 8578671-8 (Version None)
Quarter: 2012Q3

REPORT INFORMATION
  Report Type: 
  Country: None (occurrence: None)
  Receive Date: 20120808
  Receipt Date: 20120731
  Transmission Date: 20120928
  Serious: Yes (Life-Threatening, Hospitalization)
  Sender: FDA-Public Use
  Company Number: JP-GE HEALTHCARE MEDICAL DIAGNOSTICS-OMPQ-NO-1207S-0787

PATIENT
  Sex: Male

DRUGS (2)
  1. AMLODIPINE [Concomitant]
     Indication: HYPERTENSION
     Dates: start: 20091016
  2. OMNIPAQUE 140 [Suspect]
     Indication: AORTIC ANEURYSM
     Route: 042
     Dates: start: 20120712, end: 20120712

REACTIONS (4)
  - INSOMNIA [None]
  - ACUTE MYOCARDIAL INFARCTION [None]
  - CHEST PAIN [None]
  - NAUSEA [None]
